FAERS Safety Report 7896648-2 (Version None)
Quarter: 2011Q4

REPORT INFORMATION
  Report Type: 
  Country: None (occurrence: None)
  Receive Date: 20111104
  Receipt Date: 20111104
  Transmission Date: 20120403
  Serious: Yes (Disabling)
  Sender: FDA-Public Use
  Company Number: None

PATIENT
  Age: 78 Year
  Sex: Female
  Weight: 81.6475 kg

DRUGS (1)
  1. ZYVOX [Suspect]
     Indication: URINARY TRACT INFECTION
     Dosage: 1 PILL EVERY 12 HOURS ZYVOX 600 MG BY MOUTH
     Route: 048
     Dates: start: 20110707, end: 20110708

REACTIONS (6)
  - CONDITION AGGRAVATED [None]
  - ABASIA [None]
  - PAIN IN EXTREMITY [None]
  - VEIN DISORDER [None]
  - NEUROPATHY PERIPHERAL [None]
  - HEADACHE [None]
